FAERS Safety Report 13708620 (Version 1)
Quarter: 2017Q2

REPORT INFORMATION
  Report Type: Spontaneous
  Country: US (occurrence: US)
  Receive Date: 20170630
  Receipt Date: 20170630
  Transmission Date: 20170830
  Serious: No
  Sender: FDA-Public Use
  Company Number: US-CELGENEUS-USA-20170606180

PATIENT
  Sex: Male

DRUGS (1)
  1. POMALYST [Suspect]
     Active Substance: POMALIDOMIDE
     Indication: PLASMA CELL MYELOMA
     Dosage: 1 MILLIGRAM
     Route: 048
     Dates: start: 201705

REACTIONS (16)
  - Anxiety [Unknown]
  - Head discomfort [Unknown]
  - Depression [Unknown]
  - Asthenia [Unknown]
  - Myalgia [Unknown]
  - Feeling abnormal [Unknown]
  - Confusional state [Unknown]
  - Neuropathy peripheral [Unknown]
  - Fatigue [Unknown]
  - Balance disorder [Unknown]
  - Dizziness [Unknown]
  - Vision blurred [Unknown]
  - Urine output decreased [Unknown]
  - Cough [Unknown]
  - Vertigo [Unknown]
  - Pain in extremity [Unknown]

NARRATIVE: CASE EVENT DATE: 2017
